FAERS Safety Report 13721191 (Version 2)
Quarter: 2017Q3

REPORT INFORMATION
  Report Type: Spontaneous
  Country: PL (occurrence: PL)
  Receive Date: 20170706
  Receipt Date: 20170906
  Transmission Date: 20171127
  Serious: Yes (Other)
  Sender: FDA-Public Use
  Company Number: PL-BAYER-2017-123948

PATIENT
  Age: 35 Year
  Sex: Female

DRUGS (1)
  1. MIRENA [Suspect]
     Active Substance: LEVONORGESTREL
     Indication: CHEMICAL CONTRACEPTION
     Dosage: UNK
     Route: 015
     Dates: start: 20161024, end: 20170626

REACTIONS (5)
  - Thrombosis [None]
  - Amenorrhoea [None]
  - Swelling [Not Recovered/Not Resolved]
  - Device dislocation [Recovered/Resolved]
  - Vaginal haemorrhage [None]

NARRATIVE: CASE EVENT DATE: 2016
